FAERS Safety Report 7326804-3 (Version None)
Quarter: 2011Q1

REPORT INFORMATION
  Report Type: 
  Country: None (occurrence: None)
  Receive Date: 20110302
  Receipt Date: 20110120
  Transmission Date: 20110831
  Serious: Yes (Life-Threatening, Hospitalization)
  Sender: FDA-Public Use
  Company Number: ES-BAYER-2011-006202

PATIENT
  Age: 74 Year
  Sex: Female

DRUGS (4)
  1. ADIRO 100MG COMPRIMIDOS RECUBIERTOS [Interacting]
     Indication: CARDIOVASCULAR EVENT PROPHYLAXIS
     Dosage: UNK
     Route: 048
     Dates: start: 20070501, end: 20100214
  2. ALDOCUMAR [Interacting]
     Indication: CARDIAC VALVE DISEASE
     Route: 048
     Dates: start: 20100201, end: 20100214
  3. AZITHROMYCIN [Suspect]
     Indication: RESPIRATORY TRACT INFECTION
     Route: 048
     Dates: start: 20100212, end: 20100214
  4. TRANGOREX [Interacting]
     Indication: ATRIAL FLUTTER
     Route: 048
     Dates: start: 20100125, end: 20100214

REACTIONS (1)
  - UPPER GASTROINTESTINAL HAEMORRHAGE [None]
